FAERS Safety Report 12798868 (Version 1)
Quarter: 2016Q3

REPORT INFORMATION
  Report Type: Report from Study
  Country: US (occurrence: US)
  Receive Date: 20160930
  Receipt Date: 20160930
  Transmission Date: 20161109
  Serious: Yes (Other)
  Sender: FDA-Public Use
  Company Number: US-AMGEN-USASL2016133687

PATIENT

DRUGS (1)
  1. KYPROLIS [Suspect]
     Active Substance: CARFILZOMIB
     Indication: PRODUCT USED FOR UNKNOWN INDICATION
     Dosage: UNK
     Route: 065

REACTIONS (32)
  - Phosphorus metabolism disorder [Unknown]
  - Jaundice [Unknown]
  - Sinusitis [Unknown]
  - Dehydration [Unknown]
  - Muscular weakness [Unknown]
  - Back pain [Unknown]
  - Facial paralysis [Unknown]
  - Bone disorder [Unknown]
  - Decreased appetite [Unknown]
  - Lung disorder [Unknown]
  - Cardiovascular disorder [Unknown]
  - Fall [Unknown]
  - Hypogammaglobulinaemia [Unknown]
  - Staphylococcal infection [Unknown]
  - Upper respiratory tract infection [Unknown]
  - Diabetes mellitus [Unknown]
  - Neutropenia [Unknown]
  - Leukocytosis [Unknown]
  - Otitis media [Unknown]
  - Enzyme abnormality [Unknown]
  - Blood glucose abnormal [Unknown]
  - Renal disorder [Unknown]
  - Iron deficiency anaemia [Unknown]
  - Hypercalcaemia [Unknown]
  - Chronic kidney disease [Unknown]
  - Ureteral disorder [Unknown]
  - Hypotension [Unknown]
  - Rash [Unknown]
  - Magnesium metabolism disorder [Unknown]
  - Acute sinusitis [Unknown]
  - Malnutrition [Unknown]
  - Hypocalcaemia [Unknown]

NARRATIVE: CASE EVENT DATE: 20140924
